FAERS Safety Report 8559230-X (Version None)
Quarter: 2012Q3

REPORT INFORMATION
  Report Type: 
  Country: None (occurrence: None)
  Receive Date: 20120802
  Receipt Date: 20120725
  Transmission Date: 20120928
  Serious: Yes (Other)
  Sender: FDA-Public Use
  Company Number: US-BAYER-2012-071960

PATIENT
  Age: 28 Year
  Sex: Female

DRUGS (1)
  1. MIRENA [Suspect]
     Indication: CONTRACEPTION
     Dosage: 20 MCG/24HR, CONT
     Route: 015
     Dates: start: 20110601, end: 20120712

REACTIONS (6)
  - GENITAL HAEMORRHAGE [None]
  - ADVERSE DRUG REACTION [None]
  - WEIGHT INCREASED [None]
  - OVARIAN CYST [None]
  - ABDOMINAL DISTENSION [None]
  - ABDOMINAL PAIN LOWER [None]
